FAERS Safety Report 13871694 (Version 2)
Quarter: 2017Q4

REPORT INFORMATION
  Report Type: Spontaneous
  Country: JP (occurrence: JP)
  Receive Date: 20170816
  Receipt Date: 20171012
  Transmission Date: 20180320
  Serious: Yes (Death)
  Sender: FDA-Public Use
  Company Number: JP-ROCHE-1975596

PATIENT
  Age: 46 Year
  Sex: Male
  Weight: 52 kg

DRUGS (17)
  1. DENOSINE (JAPAN) [Suspect]
     Active Substance: GANCICLOVIR
     Indication: CYTOMEGALOVIRUS TEST POSITIVE
     Route: 041
     Dates: start: 20170720, end: 20170722
  2. SIMPONI [Concomitant]
     Active Substance: GOLIMUMAB
     Route: 058
     Dates: start: 20170612, end: 20170612
  3. TAKECAB [Suspect]
     Active Substance: VONOPRAZAN FUMURATE
     Route: 048
     Dates: start: 20161115, end: 20170721
  4. SIMPONI [Concomitant]
     Active Substance: GOLIMUMAB
     Route: 058
     Dates: start: 20170711, end: 20170711
  5. DEXMEDETOMIDINE HYDROCHLORIDE. [Concomitant]
     Active Substance: DEXMEDETOMIDINE HYDROCHLORIDE
     Indication: SEDATION
     Route: 041
     Dates: start: 20170722, end: 20170723
  6. TEPRENONE [Suspect]
     Active Substance: TEPRENONE
     Indication: GASTRITIS
     Route: 048
     Dates: start: 20170526, end: 20170721
  7. MEROPENEM. [Concomitant]
     Active Substance: MEROPENEM
     Indication: BACTERAEMIA
     Route: 041
     Dates: start: 20170721, end: 20170722
  8. TAKECAB [Suspect]
     Active Substance: VONOPRAZAN FUMURATE
     Indication: GASTRIC ULCER
     Route: 048
     Dates: start: 20161014, end: 20161114
  9. PENTASA [Suspect]
     Active Substance: MESALAMINE
     Indication: COLITIS ULCERATIVE
     Route: 048
     Dates: start: 20170718, end: 20170721
  10. SIMPONI [Concomitant]
     Active Substance: GOLIMUMAB
     Indication: COLITIS ULCERATIVE
     Route: 058
     Dates: start: 20170526, end: 20170526
  11. PREDONINE [Concomitant]
     Active Substance: PREDNISOLONE
     Indication: COLITIS ULCERATIVE
     Route: 048
  12. FOLIAMIN [Suspect]
     Active Substance: FOLIC ACID
     Indication: FOLATE DEFICIENCY
     Route: 048
     Dates: start: 20170720, end: 20170721
  13. SAXIZON [Concomitant]
     Active Substance: HYDROCORTISONE SODIUM SUCCINATE
     Indication: SHOCK
     Route: 041
     Dates: start: 20170721, end: 20170721
  14. NOREPINEPHRINE. [Concomitant]
     Active Substance: NOREPINEPHRINE
     Indication: SHOCK
     Route: 041
     Dates: start: 20170721, end: 20170723
  15. ANAEMETRO [Concomitant]
     Active Substance: METRONIDAZOLE
     Indication: BACTERAEMIA
     Route: 041
     Dates: start: 20170722, end: 20170722
  16. DENOSINE (JAPAN) [Suspect]
     Active Substance: GANCICLOVIR
     Dosage: 2 DOSES
     Route: 041
  17. FENTANYL. [Concomitant]
     Active Substance: FENTANYL
     Indication: SEDATION
     Route: 041
     Dates: start: 20170721, end: 20170723

REACTIONS (1)
  - Sepsis [Fatal]

NARRATIVE: CASE EVENT DATE: 20170723
